FAERS Safety Report 7171297-2 (Version None)
Quarter: 2010Q4

REPORT INFORMATION
  Report Type: 
  Country: None (occurrence: None)
  Receive Date: 20101217
  Receipt Date: 20101203
  Transmission Date: 20110411
  Serious: Yes (Other)
  Sender: FDA-Public Use
  Company Number: US-GENZYME-FLUD-1000497

PATIENT
  Age: 9 Month
  Sex: Male

DRUGS (10)
  1. FLUDARA [Suspect]
     Indication: STEM CELL TRANSPLANT
     Dosage: 30 MG/M2, QDX3
     Route: 065
  2. MYCOPHENOLATE MOFETIL [Concomitant]
     Indication: IMMUNOSUPPRESSANT DRUG THERAPY
     Dosage: 15 MG/KG, TID FROM DAY 0 TO DAY 40
     Route: 065
  3. CYCLOSPORINE [Concomitant]
     Indication: IMMUNOSUPPRESSANT DRUG THERAPY
     Dosage: UNK FROM DAY -3 TO DAY 100
  4. GANCICLOVIR [Concomitant]
     Indication: CYTOMEGALOVIRUS INFECTION
  5. CASPOFUNGIN [Concomitant]
     Indication: SYSTEMIC CANDIDA
  6. ANTIBIOTICS [Concomitant]
     Indication: BRAIN ABSCESS
  7. FLUCONAZOLE [Concomitant]
     Indication: PROPHYLAXIS
  8. TRIMETHOPRIM + SULFAMETHOXAZOLE [Concomitant]
     Indication: PROPHYLAXIS
  9. IMMUNE GLOBULIN NOS [Concomitant]
     Indication: PROPHYLAXIS
     Route: 042
  10. FOSCARNET [Concomitant]
     Indication: CYTOMEGALOVIRUS INFECTION

REACTIONS (3)
  - ACUTE GRAFT VERSUS HOST DISEASE IN SKIN [None]
  - BACTERAEMIA [None]
  - CHRONIC GRAFT VERSUS HOST DISEASE [None]
